FAERS Safety Report 9819457 (Version 1)
Quarter: 2014Q1

REPORT INFORMATION
  Report Type: Spontaneous
  Country: NL (occurrence: NL)
  Receive Date: 20140115
  Receipt Date: 20140115
  Transmission Date: 20141002
  Serious: Yes (Other)
  Sender: FDA-Public Use
  Company Number: NL-PFIZER INC-2014013408

PATIENT
  Age: 55 Year
  Sex: Female
  Weight: 75 kg

DRUGS (6)
  1. SERTRALINE [Suspect]
     Indication: DEPRESSION
     Dosage: 50 MG, 1X/DAY
     Dates: start: 20131014, end: 20131031
  2. OLANZAPINE [Suspect]
     Indication: SLEEP DISORDER
     Dosage: 2.5 MG, 1X/DAY
     Dates: start: 20130923, end: 20131031
  3. OMEPRAZOLE [Concomitant]
     Dosage: 40 MG, 1X/DAY
     Dates: start: 20110620
  4. ATORVASTATIN [Concomitant]
     Dosage: 20 MG, 1X/DAY
     Dates: start: 20090701
  5. AMLODIPINE [Concomitant]
     Dosage: 100 MG, 1X/DAY
     Dates: start: 20090420
  6. ENALAPRIL [Concomitant]
     Dosage: 10 MG, 2X/DAY
     Dates: start: 20081017

REACTIONS (2)
  - Hepatitis [Recovered/Resolved]
  - Off label use [Recovered/Resolved]
